FAERS Safety Report 17430852 (Version 1)
Quarter: 2020Q1

REPORT INFORMATION
  Report Type: Spontaneous
  Country: NL (occurrence: BE)
  Receive Date: 20200218
  Receipt Date: 20200218
  Transmission Date: 20200409
  Serious: Yes (Congenital Anomaly)
  Sender: FDA-Public Use
  Company Number: BE-FRESENIUS KABI-FK202001466

PATIENT
  Age: 1 Year
  Sex: Male

DRUGS (2)
  1. CLINDAMYCIN. [Suspect]
     Active Substance: CLINDAMYCIN
     Indication: INFECTION
     Dosage: SUSPECTED EXPOSURE OF THE CHILD DURING PREGNANCY AND VIA BREASTFEEDING
     Route: 063
  2. CLINDAMYCIN. [Suspect]
     Active Substance: CLINDAMYCIN
     Dosage: SUSPECTED EXPOSURE OF THE CHILD DURING PREGNANCY AND VIA BREASTFEEDING
     Route: 064

REACTIONS (3)
  - Tooth hypoplasia [Unknown]
  - Exposure via breast milk [Unknown]
  - Maternal exposure during pregnancy [Unknown]
